FAERS Safety Report 18916819 (Version 2)
Quarter: 2021Q2

REPORT INFORMATION
  Report Type: Spontaneous
  Country: TW (occurrence: TW)
  Receive Date: 20210219
  Receipt Date: 20210505
  Transmission Date: 20210717
  Serious: Yes (Hospitalization, Other)
  Sender: FDA-Public Use
  Company Number: TW-SUN PHARMACEUTICAL INDUSTRIES LTD-2021RR-281912

PATIENT
  Age: 51 Year
  Sex: Male

DRUGS (4)
  1. FLUCYTOSINE. [Suspect]
     Active Substance: FLUCYTOSINE
     Indication: FUNGAL INFECTION
     Dosage: 800 MILLIGRAM, DAILY
     Route: 065
  2. AMPHOTERICIN B. [Suspect]
     Active Substance: AMPHOTERICIN B
     Indication: FUNGAL INFECTION
     Dosage: 70 MILLIGRAM, DAILY
     Route: 065
  3. FLUCONAZOLE. [Concomitant]
     Active Substance: FLUCONAZOLE
     Indication: FUNGAL INFECTION
     Dosage: 800 MILLIGRAM, DAILY
     Route: 065
  4. FINGOLIMOD. [Suspect]
     Active Substance: FINGOLIMOD
     Indication: MULTIPLE SCLEROSIS
     Dosage: 0.5 MILLIGRAM, QD
     Route: 048
     Dates: start: 20140904

REACTIONS (4)
  - Acute kidney injury [Unknown]
  - Lymphopenia [Unknown]
  - Hypokalaemia [Unknown]
  - Cryptococcal cutaneous infection [Recovered/Resolved]

NARRATIVE: CASE EVENT DATE: 20161019
